FAERS Safety Report 5429463-X (Version None)
Quarter: 2007Q3

REPORT INFORMATION
  Report Type: 
  Country: None (occurrence: None)
  Receive Date: 20070829
  Receipt Date: 20070823
  Transmission Date: 20080115
  Serious: Yes (Other)
  Sender: FDA-Public Use
  Company Number: A0676047A

PATIENT
  Age: 76 Year
  Sex: Female

DRUGS (11)
  1. ADVAIR DISKUS 100/50 [Suspect]
     Indication: ASTHMA
     Dosage: 1PUFF TWICE PER DAY
     Route: 055
  2. PLAQUENIL [Suspect]
  3. FLOVENT [Concomitant]
  4. ZANTAC 150 [Concomitant]
  5. ZOCOR [Concomitant]
  6. ZOLOFT [Concomitant]
  7. SYNTHROID [Concomitant]
  8. ARAVA [Concomitant]
  9. MULTIVITAMIN [Concomitant]
  10. CLINDAMYCIN [Concomitant]
  11. ALBUTEROL [Concomitant]

REACTIONS (1)
  - BLINDNESS [None]
